APPROVED DRUG PRODUCT: SAXENDA
Active Ingredient: LIRAGLUTIDE
Strength: 18MG/3ML (6MG/ML)
Dosage Form/Route: SOLUTION;SUBCUTANEOUS
Application: N206321 | Product #001 | TE Code: AP2
Applicant: NOVO NORDISK INC
Approved: Dec 23, 2014 | RLD: Yes | RS: Yes | Type: RX

PATENTS:
Patent 9968659 | Expires: Jan 9, 2037
Patent 8114833 | Expires: Aug 13, 2025
Patent 8114833*PED | Expires: Feb 13, 2026
Patent 9968659*PED | Expires: Jul 9, 2037